FAERS Safety Report 25105121 (Version 1)
Quarter: 2025Q1

REPORT INFORMATION
  Report Type: Other
  Country: US (occurrence: US)
  Receive Date: 20250321
  Receipt Date: 20250321
  Transmission Date: 20250409
  Serious: Yes (Hospitalization, Other)
  Sender: EMD SERONO INC
  Company Number: US-Merck Healthcare KGaA-2025012971

PATIENT
  Age: 24 Year
  Sex: Female

DRUGS (3)
  1. METFORMIN [Suspect]
     Active Substance: METFORMIN HYDROCHLORIDE
     Indication: Intentional self-injury
  2. METFORMIN [Suspect]
     Active Substance: METFORMIN HYDROCHLORIDE
     Indication: Adjuvant therapy
  3. HERBALS\TETRAHYDROCANNABINOL UNSPECIFIED [Suspect]
     Active Substance: HERBALS\TETRAHYDROCANNABINOL UNSPECIFIED
     Indication: Suicidal ideation

REACTIONS (9)
  - Hypothermia [Unknown]
  - Hypoglycaemia [Recovered/Resolved]
  - Intentional self-injury [Unknown]
  - Electrocardiogram QT prolonged [Unknown]
  - Toxicity to various agents [Unknown]
  - Drug screen positive [Unknown]
  - Blood lactic acid increased [Unknown]
  - Intentional overdose [Unknown]
  - Off label use [Unknown]
